FAERS Safety Report 14772380 (Version 1)
Quarter: 2018Q2

REPORT INFORMATION
  Report Type: Spontaneous
  Country: FR (occurrence: FR)
  Receive Date: 20180418
  Receipt Date: 20180418
  Transmission Date: 20180711
  Serious: Yes (Congenital Anomaly)
  Sender: FDA-Public Use
  Company Number: FR-CIPLA LTD.-2018FR15385

PATIENT

DRUGS (6)
  1. PIVALONE                           /03009501/ [Suspect]
     Active Substance: NEOMYCIN\POLYMYXIN B\TIXOCORTOL
     Dosage: UNK
     Route: 064
     Dates: start: 201403
  2. AMOXICILLINE                       /00249601/ [Suspect]
     Active Substance: AMOXICILLIN
     Dosage: UNK
     Route: 064
     Dates: start: 201403
  3. PRIMPERAN [Suspect]
     Active Substance: METOCLOPRAMIDE HYDROCHLORIDE
     Dosage: 3 DF, PER DAY
     Route: 064
     Dates: start: 20140327, end: 201406
  4. FOLIC ACID. [Suspect]
     Active Substance: FOLIC ACID
     Dosage: 1 DF, PER DAY
     Route: 064
     Dates: start: 20140213, end: 201405
  5. DOLIPRANE [Suspect]
     Active Substance: ACETAMINOPHEN
     Dosage: UNK
     Route: 064
     Dates: start: 201403
  6. DUPHASTON [Concomitant]
     Active Substance: DYDROGESTERONE
     Dosage: 1 DF, UNK
     Route: 064
     Dates: start: 201402, end: 201402

REACTIONS (5)
  - Aplasia cutis congenita [Recovered/Resolved with Sequelae]
  - Hypertelorism of orbit [Unknown]
  - Micrognathia [Unknown]
  - Hypospadias [Recovered/Resolved]
  - Premature baby [Recovered/Resolved]

NARRATIVE: CASE EVENT DATE: 20141009
